FAERS Safety Report 7907310-1 (Version None)
Quarter: 2011Q4

REPORT INFORMATION
  Report Type: 
  Country: None (occurrence: None)
  Receive Date: 20111110
  Receipt Date: 20111101
  Transmission Date: 20120403
  Serious: Yes (Hospitalization)
  Sender: FDA-Public Use
  Company Number: CA-GLAXOSMITHKLINE-A0951618A

PATIENT
  Sex: Male

DRUGS (2)
  1. AVANDIA [Suspect]
     Indication: PRODUCT USED FOR UNKNOWN INDICATION
     Route: 048
     Dates: start: 20070101, end: 20090101
  2. METFORMIN HCL [Concomitant]

REACTIONS (8)
  - MUSCULOSKELETAL DISCOMFORT [None]
  - MEMORY IMPAIRMENT [None]
  - ILL-DEFINED DISORDER [None]
  - SPEECH DISORDER [None]
  - COGNITIVE DISORDER [None]
  - SUBDURAL HAEMATOMA [None]
  - MUSCULOSKELETAL DISORDER [None]
  - CEREBROVASCULAR ACCIDENT [None]
